FAERS Safety Report 20030779 (Version 2)
Quarter: 2021Q4

REPORT INFORMATION
  Report Type: Spontaneous
  Country: US (occurrence: US)
  Receive Date: 20211103
  Receipt Date: 20211119
  Transmission Date: 20220303
  Serious: No
  Sender: FDA-Public Use
  Company Number: US-009507513-2110USA008828

PATIENT
  Age: 67 Year
  Sex: Male

DRUGS (5)
  1. PRINIVIL [Suspect]
     Active Substance: LISINOPRIL
     Dosage: 1 DOSAGE FORM, QD
     Route: 048
  2. LOVASTATIN [Suspect]
     Active Substance: LOVASTATIN
     Dosage: 1 DOSAGE FORM, QD
  3. FUROSEMIDE [Suspect]
     Active Substance: FUROSEMIDE
     Dosage: 1 DOSAGE FORM, QD
  4. TIZANIDINE [Suspect]
     Active Substance: TIZANIDINE
     Dosage: 1 THREE TIMES DAILY AS NEEDED
  5. NYAMYC [Suspect]
     Active Substance: NYSTATIN
     Dosage: UNK, QD

REACTIONS (4)
  - Nasopharyngitis [Not Recovered/Not Resolved]
  - Insomnia [Not Recovered/Not Resolved]
  - Middle insomnia [Not Recovered/Not Resolved]
  - Myalgia [Not Recovered/Not Resolved]
